FAERS Safety Report 9288547 (Version 2)
Quarter: 2013Q3

REPORT INFORMATION
  Report Type: Report from Study
  Country: DE (occurrence: DE)
  Receive Date: 20130514
  Receipt Date: 20130726
  Transmission Date: 20140515
  Serious: Yes (Hospitalization)
  Sender: FDA-Public Use
  Company Number: DE-ROCHE-1193088

PATIENT
  Age: 73 Year
  Sex: Female
  Weight: 38.5 kg

DRUGS (3)
  1. VEMURAFENIB [Suspect]
     Indication: NON-SMALL CELL LUNG CANCER
     Dosage: LAST DOSE PRIOR TO SAE WAS 12/FEB/2013
     Route: 048
     Dates: start: 20130206, end: 20130212
  2. VEMURAFENIB [Suspect]
     Route: 048
     Dates: start: 20130226
  3. MERONEM [Concomitant]
     Route: 065
     Dates: start: 20130212

REACTIONS (1)
  - Renal failure acute [Recovered/Resolved]
